FAERS Safety Report 7309194-1 (Version None)
Quarter: 2011Q1

REPORT INFORMATION
  Report Type: 
  Country: None (occurrence: None)
  Receive Date: 20110223
  Receipt Date: 20110209
  Transmission Date: 20110831
  Serious: Yes (Hospitalization, Other)
  Sender: FDA-Public Use
  Company Number: US-BAYER-201016842NA

PATIENT
  Sex: Female
  Weight: 45 kg

DRUGS (13)
  1. XANAX [Concomitant]
     Indication: ANXIETY
     Dates: start: 20080913, end: 20080901
  2. FUROSEMIDE [Concomitant]
     Indication: HYPERTENSION
     Dates: end: 20080801
  3. UNCODEABLE ^UNCLASSIFIABLE^ [Concomitant]
     Indication: MIGRAINE
  4. ANTIMIGRAINE PREPARATIONS [Concomitant]
     Indication: MIGRAINE
  5. FENTANYL-100 [Concomitant]
     Indication: PAIN
     Route: 041
     Dates: start: 20080913, end: 20080914
  6. ZOFRAN [Concomitant]
     Dosage: DAILY DOSE 4 MG
     Dates: start: 20080913, end: 20080916
  7. BENADRYL [Concomitant]
     Dosage: DAILY DOSE 50 MG
     Route: 048
     Dates: start: 20080914, end: 20080901
  8. MOTRIN [Concomitant]
     Indication: PAIN
     Dosage: DAILY DOSE 200 MG
     Route: 048
     Dates: start: 20080916, end: 20080901
  9. YAZ [Suspect]
     Indication: PRODUCT USED FOR UNKNOWN INDICATION
     Route: 048
     Dates: start: 20071120, end: 20080901
  10. YASMIN [Suspect]
     Indication: PRODUCT USED FOR UNKNOWN INDICATION
     Route: 048
  11. VERSED [Concomitant]
     Dosage: DAILY DOSE 1 MG
     Route: 042
     Dates: start: 20080913, end: 20080901
  12. TYLENOL W/ CODEINE NO. 3 [Concomitant]
     Indication: PAIN
     Route: 048
     Dates: start: 20080915, end: 20080901
  13. DILAUDID [Concomitant]
     Indication: PAIN
     Dosage: DAILY DOSE 1.5 MG
     Dates: start: 20080914, end: 20080901

REACTIONS (18)
  - PARAESTHESIA [None]
  - CONVULSION [None]
  - BINOCULAR EYE MOVEMENT DISORDER [None]
  - HYPOAESTHESIA [None]
  - CEREBRAL INFARCTION [None]
  - DYSKINESIA [None]
  - DEPRESSION [None]
  - INTRACRANIAL ANEURYSM [None]
  - MUSCULAR WEAKNESS [None]
  - VISUAL IMPAIRMENT [None]
  - CONFUSIONAL STATE [None]
  - VOMITING [None]
  - CEREBROVASCULAR ACCIDENT [None]
  - HEADACHE [None]
  - HYPOACUSIS [None]
  - TRANSIENT ISCHAEMIC ATTACK [None]
  - CEREBRAL THROMBOSIS [None]
  - TREMOR [None]
